FAERS Safety Report 15277743 (Version 2)
Quarter: 2018Q4

REPORT INFORMATION
  Report Type: Report from Study
  Country: US (occurrence: US)
  Receive Date: 20180814
  Receipt Date: 20181019
  Transmission Date: 20190204
  Serious: Yes (Death, Hospitalization)
  Sender: FDA-Public Use
  Company Number: US-ASTRAZENECA-2018SE94003

PATIENT
  Age: 40 Year
  Sex: Female
  Weight: 47.5 kg

DRUGS (2)
  1. DURVALUMAB. [Suspect]
     Active Substance: DURVALUMAB
     Indication: GENITAL NEOPLASM MALIGNANT FEMALE
     Route: 042
     Dates: start: 20180702
  2. RADIATION THERAPY [Suspect]
     Active Substance: RADIATION THERAPY
     Indication: GENITAL NEOPLASM MALIGNANT FEMALE
     Dosage: 5 FRACTIONS
     Route: 065
     Dates: start: 20180702

REACTIONS (5)
  - Rash maculo-papular [Unknown]
  - Mucosal inflammation [Unknown]
  - Keratitis [Unknown]
  - Dysuria [Unknown]
  - Death [Fatal]

NARRATIVE: CASE EVENT DATE: 20180801
